FAERS Safety Report 5934458-3 (Version None)
Quarter: 2008Q4

REPORT INFORMATION
  Report Type: 
  Country: None (occurrence: None)
  Receive Date: 20081029
  Receipt Date: 20081017
  Transmission Date: 20090506
  Serious: Yes (Other)
  Sender: FDA-Public Use
  Company Number: US-PFIZER INC-2008088180

PATIENT
  Sex: Male
  Weight: 88.5 kg

DRUGS (6)
  1. GEODON [Suspect]
     Dates: start: 20080401, end: 20080401
  2. ADDERALL 10 [Concomitant]
  3. ANAFRANIL [Concomitant]
  4. STRATTERA [Concomitant]
  5. KLONOPIN [Concomitant]
  6. LEXAPRO [Concomitant]

REACTIONS (4)
  - DYSSTASIA [None]
  - FALL [None]
  - FATIGUE [None]
  - IMPAIRED DRIVING ABILITY [None]
